FAERS Safety Report 5828636-1 (Version None)
Quarter: 2008Q3

REPORT INFORMATION
  Report Type: 
  Country: None (occurrence: None)
  Receive Date: 20080731
  Receipt Date: 20080723
  Transmission Date: 20090109
  Serious: Yes (Life-Threatening, Hospitalization)
  Sender: FDA-Public Use
  Company Number: B0524973A

PATIENT
  Age: 3 Year
  Sex: Female

DRUGS (7)
  1. ZOVIRAX [Suspect]
     Indication: ORAL HERPES
     Dosage: 5MGK THREE TIMES PER DAY
     Route: 042
     Dates: start: 20080610, end: 20080611
  2. ZOVIRAX [Suspect]
     Dosage: 10MGK PER DAY
     Route: 042
     Dates: start: 20080612, end: 20080612
  3. VALTREX [Suspect]
     Indication: ORAL HERPES
     Dosage: 25MGK THREE TIMES PER DAY
     Route: 048
     Dates: start: 20080607, end: 20080610
  4. ANHIBA [Suspect]
     Route: 054
     Dates: start: 20080606, end: 20080612
  5. ONON [Suspect]
     Indication: ASTHMA
     Dosage: 60MG TWICE PER DAY
     Route: 048
     Dates: start: 20080606, end: 20080610
  6. ROCEPHIN [Concomitant]
     Indication: INFECTION
     Dosage: .5G PER DAY
     Route: 042
     Dates: start: 20080609, end: 20080609
  7. HOKUNALIN [Concomitant]
     Indication: ASTHMA
     Dosage: .5MG PER DAY
     Route: 062
     Dates: start: 20080606, end: 20080610

REACTIONS (13)
  - BLISTER [None]
  - CONJUNCTIVAL HYPERAEMIA [None]
  - DIARRHOEA [None]
  - LIP EROSION [None]
  - LIP SWELLING [None]
  - MUCOUS MEMBRANE DISORDER [None]
  - PAIN [None]
  - PYREXIA [None]
  - RASH [None]
  - SKIN LESION [None]
  - STEVENS-JOHNSON SYNDROME [None]
  - TOXIC EPIDERMAL NECROLYSIS [None]
  - VOMITING [None]
